FAERS Safety Report 18610213 (Version 1)
Quarter: 2020Q4

REPORT INFORMATION
  Report Type: Spontaneous
  Country: US (occurrence: US)
  Receive Date: 20201214
  Receipt Date: 20201214
  Transmission Date: 20210114
  Serious: Yes (Other)
  Sender: FDA-Public Use
  Company Number: US-ACCORD-208669

PATIENT
  Sex: Male

DRUGS (1)
  1. FINASTERIDE ACCORD [Suspect]
     Active Substance: FINASTERIDE
     Indication: ALOPECIA
     Dosage: DAILY
     Route: 048

REACTIONS (4)
  - Irritable bowel syndrome [Unknown]
  - Insomnia [Recovered/Resolved]
  - Withdrawal syndrome [Recovered/Resolved]
  - Drug dependence [Unknown]
